FAERS Safety Report 6967629-8 (Version None)
Quarter: 2010Q3

REPORT INFORMATION
  Report Type: 
  Country: None (occurrence: None)
  Receive Date: 20100901
  Receipt Date: 20100817
  Transmission Date: 20110219
  Serious: Yes (Hospitalization)
  Sender: FDA-Public Use
  Company Number: DSA_43778_2010

PATIENT
  Age: 17 Year
  Sex: Female

DRUGS (14)
  1. ENALAPRIL MALEATE [Suspect]
     Indication: PRODUCT USED FOR UNKNOWN INDICATION
     Dosage: 2.5 MG QD, DF ORAL
     Dates: end: 20100122
  2. ENALAPRIL MALEATE [Suspect]
     Indication: PRODUCT USED FOR UNKNOWN INDICATION
     Dosage: 2.5 MG QD, DF ORAL
     Dates: start: 20100401
  3. OMEPRAZOLE [Suspect]
     Indication: PRODUCT USED FOR UNKNOWN INDICATION
     Dosage: 20 MG QD, DF ORAL
     Dates: end: 20100122
  4. OMEPRAZOLE [Suspect]
     Indication: PRODUCT USED FOR UNKNOWN INDICATION
     Dosage: 20 MG QD, DF ORAL
     Dates: start: 20100401
  5. PLAQUENIL /00072603/ (PLAQUENIL HYDROXYCHLOROQUINESSO4) 400 MG (NOT SP [Suspect]
     Indication: PRODUCT USED FOR UNKNOWN INDICATION
     Dosage: 400 MG QD, DF ORAL
     Dates: end: 20100122
  6. PLAQUENIL /00072603/ (PLAQUENIL HYDROXYCHLOROQUINESSO4) 400 MG (NOT SP [Suspect]
     Indication: PRODUCT USED FOR UNKNOWN INDICATION
     Dosage: 400 MG QD, DF ORAL
     Dates: end: 20100401
  7. ALENDRONATE SODIUM (+) CHOLECALCIFEROL (MSD) (UNKNOWN) [Concomitant]
  8. KARDEGIC (UNKNOWN) [Concomitant]
  9. OROCAL D (3) (UNKNOWN) [Concomitant]
  10. PAROEX (UNKNOWN) [Concomitant]
  11. CELLCEPT [Concomitant]
  12. LUTENYL [Concomitant]
  13. DIFFU K [Concomitant]
  14. CORTANCYL [Concomitant]

REACTIONS (4)
  - AGRANULOCYTOSIS [None]
  - BONE MARROW MYELOGRAM ABNORMAL [None]
  - C-REACTIVE PROTEIN INCREASED [None]
  - HYPERTHERMIA [None]
